FAERS Safety Report 11929344 (Version 1)
Quarter: 2016Q1

REPORT INFORMATION
  Report Type: Spontaneous
  Country: CN (occurrence: CN)
  Receive Date: 20160120
  Receipt Date: 20160120
  Transmission Date: 20160526
  Serious: Yes (Death)
  Sender: FDA-Public Use
  Company Number: CN-CIPLA LTD.-2016CN00231

PATIENT

DRUGS (8)
  1. DOCETAXEL. [Suspect]
     Active Substance: DOCETAXEL
     Indication: NASOPHARYNGEAL CANCER
     Dosage: 60-75 MG/M2 D1
     Route: 065
  2. CETUXIMAB [Suspect]
     Active Substance: CETUXIMAB
     Indication: NASOPHARYNGEAL CANCER
     Dosage: INITIAL DOSE OF 400 MG/M2, FOLLOWED BY WEEKLY INFUSIONS OF 250 MG/M2
  3. GEMCITABINE [Suspect]
     Active Substance: GEMCITABINE\GEMCITABINE HYDROCHLORIDE
     Indication: NASOPHARYNGEAL CANCER
     Dosage: 1.0 G/M2 D1-D8
     Route: 065
  4. CISPLATIN. [Suspect]
     Active Substance: CISPLATIN
     Indication: NASOPHARYNGEAL CANCER
     Dosage: 25 MG/M2 D1-3
     Route: 065
  5. CARBOPLATIN. [Suspect]
     Active Substance: CARBOPLATIN
     Indication: NASOPHARYNGEAL CANCER
     Dosage: AUC 2/WEEK D1
     Route: 065
  6. FLUOROURACIL. [Suspect]
     Active Substance: FLUOROURACIL
     Indication: NASOPHARYNGEAL CANCER
     Dosage: 500 MG/M2/DAY WITH 120-H INFUSION
  7. CETUXIMAB [Suspect]
     Active Substance: CETUXIMAB
     Dosage: INITIAL DOSE OF 400 MG/M2, FOLLOWED BY WEEKLY INFUSIONS OF 250 MG/M2
  8. PACLITAXEL. [Suspect]
     Active Substance: PACLITAXEL
     Indication: NASOPHARYNGEAL CANCER
     Dosage: 60 MG/M2/WEEK D1
     Route: 065

REACTIONS (1)
  - Death [Fatal]
